FAERS Safety Report 7301452-X (Version None)
Quarter: 2011Q1

REPORT INFORMATION
  Report Type: 
  Country: None (occurrence: None)
  Receive Date: 20110113
  Receipt Date: 20101109
  Transmission Date: 20110831
  Serious: No
  Sender: FDA-Public Use
  Company Number: US-001384

PATIENT
  Sex: Male
  Weight: 16.7831 kg

DRUGS (2)
  1. KVUAN (SAPROPERTIN DIHYDROCHLORIDE) 100 MG [Suspect]
     Indication: PHENYLKETONURIA
     Dosage: 350 MG QD ORAL
     Route: 048
     Dates: start: 20101013
  2. FLUMIST [Concomitant]

REACTIONS (4)
  - NASAL CONGESTION [None]
  - SNEEZING [None]
  - RHINORRHOEA [None]
  - COUGH [None]
